FAERS Safety Report 16623623 (Version 1)
Quarter: 2019Q3

REPORT INFORMATION
  Report Type: Spontaneous
  Country: US (occurrence: US)
  Receive Date: 20190724
  Receipt Date: 20190724
  Transmission Date: 20191004
  Serious: Yes (Life-Threatening, Hospitalization, Other)
  Sender: FDA-Public Use
  Company Number: US-BRISTOL-MYERS SQUIBB COMPANY-BMS-2019-071378

PATIENT
  Age: 67 Year
  Sex: Male
  Weight: 74 kg

DRUGS (3)
  1. RITUXIMAB. [Suspect]
     Active Substance: RITUXIMAB
     Indication: DIFFUSE LARGE B-CELL LYMPHOMA
     Dosage: 671 MILLIGRAM, (C1 D1)
     Route: 042
     Dates: start: 20181221
  2. BENDAMUSTINE [Suspect]
     Active Substance: BENDAMUSTINE
     Indication: DIFFUSE LARGE B-CELL LYMPHOMA
     Dosage: 161 MILLIGRAM (C1 D1-2)
     Route: 042
     Dates: start: 20181221
  3. ELIQUIS [Suspect]
     Active Substance: APIXABAN
     Indication: PRODUCT USED FOR UNKNOWN INDICATION
     Dosage: UNK
     Route: 065
     Dates: start: 201801

REACTIONS (8)
  - Gastrointestinal haemorrhage [Recovered/Resolved]
  - Clostridium difficile colitis [Recovered/Resolved]
  - Amoebic colitis [Recovered/Resolved]
  - Syncope [Unknown]
  - Colitis [Unknown]
  - Dysuria [Unknown]
  - Haemoglobin decreased [Unknown]
  - Asthenia [Unknown]

NARRATIVE: CASE EVENT DATE: 201809
